FAERS Safety Report 5925916-6 (Version None)
Quarter: 2008Q4

REPORT INFORMATION
  Report Type: 
  Country: None (occurrence: None)
  Receive Date: 20081021
  Receipt Date: 20081009
  Transmission Date: 20090506
  Serious: Yes (Hospitalization)
  Sender: FDA-Public Use
  Company Number: US-PFIZER INC-2008084694

PATIENT
  Sex: Female
  Weight: 90.3 kg

DRUGS (9)
  1. GLIPIZIDE [Suspect]
     Indication: TYPE 2 DIABETES MELLITUS
     Route: 048
     Dates: start: 20070126, end: 20081007
  2. CELECOXIB [Suspect]
     Indication: OSTEOARTHRITIS
     Route: 048
     Dates: start: 20080819, end: 20081002
  3. ACETYLSALICYLIC ACID SRT [Concomitant]
     Route: 048
     Dates: start: 20011210
  4. PREDNISONE TAB [Concomitant]
     Route: 048
     Dates: start: 20080819
  5. CADUET [Concomitant]
     Dosage: TEXT:10/10
     Route: 048
     Dates: start: 20061026
  6. MAXZIDE [Concomitant]
     Dosage: TEXT:25 37.5
     Route: 048
     Dates: start: 20070227
  7. PERCOCET [Concomitant]
     Dosage: TEXT:7.5/325 MG
     Route: 048
     Dates: start: 20080212
  8. LANTUS [Concomitant]
     Dosage: TEXT:20 U
     Route: 058
     Dates: start: 20080918
  9. HUMALOG [Concomitant]
     Dosage: TEXT:8-22 U
     Route: 058
     Dates: start: 20080918

REACTIONS (2)
  - DIARRHOEA [None]
  - ERYTHEMA NODOSUM [None]
